FAERS Safety Report 6343287-0 (Version None)
Quarter: 2009Q3

REPORT INFORMATION
  Report Type: 
  Country: None (occurrence: None)
  Receive Date: 20090903
  Receipt Date: 20090819
  Transmission Date: 20100115
  Serious: Yes (Other)
  Sender: FDA-Public Use
  Company Number: A-US2007-18329

PATIENT
  Age: 68 Year
  Sex: Female

DRUGS (2)
  1. TRACLEER [Suspect]
     Indication: PULMONARY ARTERIAL HYPERTENSION
     Dosage: 125 MG, BID, 62.5 MG, BID, ORAL
     Route: 048
     Dates: start: 20070813, end: 20071011
  2. TRACLEER [Suspect]
     Indication: PULMONARY ARTERIAL HYPERTENSION
     Dosage: 125 MG, BID, 62.5 MG, BID, ORAL
     Route: 048
     Dates: start: 20071012, end: 20090717

REACTIONS (1)
  - BILIARY CIRRHOSIS PRIMARY [None]
